FAERS Safety Report 18577049 (Version 1)
Quarter: 2020Q4

REPORT INFORMATION
  Report Type: Spontaneous
  Country: DE (occurrence: DE)
  Receive Date: 20201203
  Receipt Date: 20201203
  Transmission Date: 20210114
  Serious: Yes (Other)
  Sender: FDA-Public Use
  Company Number: NVSC2020DE316762

PATIENT
  Sex: Female
  Weight: 117 kg

DRUGS (1)
  1. MTX 15 MG HEXAL INJEKT [Suspect]
     Active Substance: METHOTREXATE SODIUM
     Indication: PRODUCT USED FOR UNKNOWN INDICATION
     Dosage: 1 ML, QW
     Route: 065
     Dates: start: 201811

REACTIONS (4)
  - Myopathy [Unknown]
  - Dizziness [Not Recovered/Not Resolved]
  - Polymyositis [Unknown]
  - Abdominal discomfort [Not Recovered/Not Resolved]

NARRATIVE: CASE EVENT DATE: 202009
